FAERS Safety Report 19233825 (Version 2)
Quarter: 2021Q2

REPORT INFORMATION
  Report Type: Spontaneous
  Country: US (occurrence: US)
  Receive Date: 20210507
  Receipt Date: 20210512
  Transmission Date: 20210717
  Serious: Yes (Other)
  Sender: FDA-Public Use
  Company Number: US-ALLERGAN-2117017US

PATIENT
  Sex: Female

DRUGS (2)
  1. DURYSTA [Suspect]
     Active Substance: BIMATOPROST
     Indication: GLAUCOMA
     Dosage: 10 ?G, SINGLE
     Route: 031
     Dates: start: 20210205, end: 20210205
  2. DURYSTA [Suspect]
     Active Substance: BIMATOPROST
     Dosage: 10 ?G, SINGLE
     Route: 031
     Dates: start: 20210219, end: 20210219

REACTIONS (5)
  - Swelling face [Recovered/Resolved]
  - Uveitis [Recovered/Resolved]
  - Eye swelling [Recovered/Resolved]
  - Erythema [Recovered/Resolved]
  - Eye pain [Recovered/Resolved]

NARRATIVE: CASE EVENT DATE: 202103
